FAERS Safety Report 20344052 (Version 5)
Quarter: 2023Q4

REPORT INFORMATION
  Report Type: Spontaneous
  Country: US (occurrence: US)
  Receive Date: 20220118
  Receipt Date: 20231128
  Transmission Date: 20240110
  Serious: No
  Sender: FDA-Public Use
  Company Number: US-SA-SAC20220110000363

PATIENT
  Age: 40 Year
  Sex: Female

DRUGS (10)
  1. DUPIXENT [Suspect]
     Active Substance: DUPILUMAB
     Indication: Dermatitis atopic
     Dosage: 300 MG, QOW
     Route: 058
     Dates: start: 20210121
  2. VITAMIN C [Concomitant]
     Active Substance: ASCORBIC ACID
  3. ZINC ACETATE [Concomitant]
     Active Substance: ZINC ACETATE
  4. VITAMIN D NOS [Concomitant]
     Active Substance: VITAMIN D NOS
  5. VITAMIN D NOS [Concomitant]
     Active Substance: VITAMIN D NOS
  6. METHYLPREDNISOLONE [Concomitant]
     Active Substance: METHYLPREDNISOLONE
  7. FOLIC ACID [Concomitant]
     Active Substance: FOLIC ACID
  8. MELOXICAM [Concomitant]
     Active Substance: MELOXICAM
  9. SYNTHROID [Concomitant]
     Active Substance: LEVOTHYROXINE SODIUM
  10. TRIAMCINOLONE [Concomitant]
     Active Substance: TRIAMCINOLONE

REACTIONS (7)
  - Sleep disorder [Not Recovered/Not Resolved]
  - Discomfort [Recovering/Resolving]
  - Arthralgia [Unknown]
  - Rash [Recovering/Resolving]
  - Dermatitis atopic [Not Recovered/Not Resolved]
  - Injection site pain [Unknown]
  - Drug ineffective [Unknown]
